FAERS Safety Report 4504667-9 (Version None)
Quarter: 2004Q4

REPORT INFORMATION
  Report Type: 
  Country: None (occurrence: None)
  Receive Date: 20041116
  Receipt Date: 20041028
  Transmission Date: 20050328
  Serious: Yes (Hospitalization)
  Sender: FDA-Public Use
  Company Number: DSA_25213_2004

PATIENT
  Age: 42 Year
  Sex: Female

DRUGS (4)
  1. TAVOR [Suspect]
     Dosage: 10 MG ONCE PO
     Route: 048
     Dates: start: 20041011, end: 20041011
  2. COGNAC [Suspect]
     Dosage: 1.4 L ONCE PO
     Route: 048
     Dates: start: 20041011, end: 20041011
  3. REMERGIL [Suspect]
     Dosage: 2400 MG ONCE PO
     Route: 048
     Dates: start: 20041011, end: 20041011
  4. ZYPREXA [Suspect]
     Dosage: 140 MG ONCE PO
     Route: 048
     Dates: start: 20041011, end: 20041011

REACTIONS (5)
  - ALCOHOL USE [None]
  - ELECTROCARDIOGRAM QT PROLONGED [None]
  - LOSS OF CONSCIOUSNESS [None]
  - MULTIPLE DRUG OVERDOSE INTENTIONAL [None]
  - RESPIRATORY DEPRESSION [None]
